FAERS Safety Report 6863212-3 (Version None)
Quarter: 2010Q3

REPORT INFORMATION
  Report Type: 
  Country: None (occurrence: None)
  Receive Date: 20100707
  Receipt Date: 20100607
  Transmission Date: 20110219
  Serious: Yes (Hospitalization, Other)
  Sender: FDA-Public Use
  Company Number: THYM-1001051

PATIENT
  Age: 62 Year
  Sex: Male
  Weight: 57 kg

DRUGS (4)
  1. THYMOGLOBULIN [Suspect]
     Indication: APLASTIC ANAEMIA
     Dosage: 200 MG, ONCE, INTRAVENOUS
     Route: 042
     Dates: start: 20090507, end: 20090507
  2. CYCLOSPORINE [Concomitant]
  3. PREDNISOLONE ACETATE [Concomitant]
  4. METHYLPREDNISOLONE [Concomitant]

REACTIONS (5)
  - ALANINE AMINOTRANSFERASE INCREASED [None]
  - ASPARTATE AMINOTRANSFERASE INCREASED [None]
  - LEUKOPENIA [None]
  - LIVER DISORDER [None]
  - PYREXIA [None]
